FAERS Safety Report 7084887-2 (Version None)
Quarter: 2010Q4

REPORT INFORMATION
  Report Type: 
  Country: None (occurrence: None)
  Receive Date: 20101027
  Receipt Date: 20101001
  Transmission Date: 20110411
  Serious: Yes (Other)
  Sender: FDA-Public Use
  Company Number: 2010EU005318

PATIENT
  Age: 35 Year
  Sex: Male

DRUGS (7)
  1. PROTOPIC [Suspect]
     Indication: BLISTER
     Dosage: 0.1 %, /D, TOPICAL ; 0.03 %, /D, TOPICAL
     Route: 061
     Dates: end: 20100205
  2. PROTOPIC [Suspect]
     Indication: DERMATITIS EXFOLIATIVE
     Dosage: 0.1 %, /D, TOPICAL ; 0.03 %, /D, TOPICAL
     Route: 061
     Dates: end: 20100205
  3. PROTOPIC [Suspect]
     Indication: SKIN EXFOLIATION
     Dosage: 0.1 %, /D, TOPICAL ; 0.03 %, /D, TOPICAL
     Route: 061
     Dates: end: 20100205
  4. PROTOPIC [Suspect]
     Indication: BLISTER
     Dosage: 0.1 %, /D, TOPICAL ; 0.03 %, /D, TOPICAL
     Route: 061
     Dates: start: 20100119
  5. PROTOPIC [Suspect]
     Indication: DERMATITIS EXFOLIATIVE
     Dosage: 0.1 %, /D, TOPICAL ; 0.03 %, /D, TOPICAL
     Route: 061
     Dates: start: 20100119
  6. PROTOPIC [Suspect]
     Indication: SKIN EXFOLIATION
     Dosage: 0.1 %, /D, TOPICAL ; 0.03 %, /D, TOPICAL
     Route: 061
     Dates: start: 20100119
  7. CORTICOSTEROIDS [Concomitant]

REACTIONS (6)
  - CYTOMEGALOVIRUS INFECTION [None]
  - HYPERAESTHESIA [None]
  - IMMUNOSUPPRESSANT DRUG LEVEL INCREASED [None]
  - PRURITUS [None]
  - RENAL IMPAIRMENT [None]
  - THERAPEUTIC AGENT TOXICITY [None]
